FAERS Safety Report 24277960 (Version 1)
Quarter: 2024Q3

REPORT INFORMATION
  Report Type: Spontaneous
  Country: US (occurrence: None)
  Receive Date: 20240830
  Receipt Date: 20240830
  Transmission Date: 20241016
  Serious: No
  Sender: Public
  Company Number: None

PATIENT
  Age: 2 Year
  Sex: Male
  Weight: 9.3 kg

DRUGS (1)
  1. MEKINIST [Suspect]
     Active Substance: TRAMETINIB DIMETHYL SULFOXIDE
     Indication: Hypertrophic cardiomyopathy
     Dosage: 0.2325MG  DAILY ORAL? ?
     Route: 048
     Dates: start: 20240601

REACTIONS (1)
  - Blister [None]

NARRATIVE: CASE EVENT DATE: 20240701
